FAERS Safety Report 7773226 (Version 2)
Quarter: 2013Q2

REPORT INFORMATION
  Report Type: Report from Study
  Country: MX (occurrence: MX)
  Receive Date: 20110125
  Receipt Date: 20130523
  Transmission Date: 20140414
  Serious: Yes (Hospitalization, Other)
  Sender: FDA-Public Use
  Company Number: PHHY2011MX03521

PATIENT
  Age: 29 Year
  Sex: Male

DRUGS (1)
  1. TRILEPTAL [Suspect]
     Indication: EPILEPSY
     Dosage: 4 DF, PER DAY
     Route: 048
     Dates: start: 200906

REACTIONS (4)
  - Road traffic accident [Recovering/Resolving]
  - Infarction [Not Recovered/Not Resolved]
  - Diabetic foot [Unknown]
  - Infection [Recovering/Resolving]
